FAERS Safety Report 13693910 (Version 2)
Quarter: 2017Q3

REPORT INFORMATION
  Report Type: Report from Study
  Country: DE (occurrence: DE)
  Receive Date: 20170627
  Receipt Date: 20170706
  Transmission Date: 20171127
  Serious: Yes (Hospitalization)
  Sender: FDA-Public Use
  Company Number: DE-PFIZER INC-2014130246

PATIENT
  Age: 65 Year
  Sex: Female
  Weight: 79.37 kg

DRUGS (6)
  1. DEXAMETHASONE. [Concomitant]
     Active Substance: DEXAMETHASONE
     Dosage: 40 MG, UNK
     Dates: start: 20140410, end: 20140505
  2. TEMSIROLIMUS [Suspect]
     Active Substance: TEMSIROLIMUS
     Dosage: 50 MG, CYCLIC (DAY 1 AND 8 IN EACH CYCLE)
     Dates: start: 20140408
  3. CISPLATIN. [Concomitant]
     Active Substance: CISPLATIN
     Dosage: UNK
     Dates: start: 20140410, end: 20140410
  4. CYTARABINE. [Concomitant]
     Active Substance: CYTARABINE
     Dosage: 3640 MG, UNK
     Dates: start: 20140411, end: 20140503
  5. RITUXIMAB. [Concomitant]
     Active Substance: RITUXIMAB
     Dosage: 682.5 MG, UNK
     Dates: start: 20140409, end: 20140501
  6. CARBOPLATIN. [Suspect]
     Active Substance: CARBOPLATIN
     Dosage: 421.48 MG, UNK
     Dates: start: 20140502

REACTIONS (2)
  - C-reactive protein increased [Recovered/Resolved]
  - Neutropenia [Recovered/Resolved]

NARRATIVE: CASE EVENT DATE: 20140507
